FAERS Safety Report 11344673 (Version 2)
Quarter: 2015Q3

REPORT INFORMATION
  Report Type: Spontaneous
  Country: AU (occurrence: AU)
  Receive Date: 20150806
  Receipt Date: 20150814
  Transmission Date: 20151125
  Serious: Yes (Hospitalization, Other)
  Sender: FDA-Public Use
  Company Number: AU-CELGENE-AUS-2015070018

PATIENT
  Age: 69 Year
  Sex: Male
  Weight: 73.4 kg

DRUGS (1)
  1. AZACITIDINE INJECTABLE [Suspect]
     Active Substance: AZACITIDINE
     Indication: MYELODYSPLASTIC SYNDROME
     Route: 065
     Dates: start: 20150427, end: 20150628

REACTIONS (4)
  - Epistaxis [Recovered/Resolved with Sequelae]
  - Pyrexia [Recovered/Resolved]
  - Mucosal haemorrhage [Recovered/Resolved with Sequelae]
  - Cytopenia [Recovered/Resolved]

NARRATIVE: CASE EVENT DATE: 20150619
